FAERS Safety Report 8994052 (Version 1)
Quarter: 2013Q1

REPORT INFORMATION
  Report Type: Spontaneous
  Country: US (occurrence: US)
  Receive Date: 20130102
  Receipt Date: 20130102
  Transmission Date: 20140127
  Serious: No
  Sender: FDA-Public Use
  Company Number: US-AMGEN-USASP2012082310

PATIENT
  Age: 64 Year
  Sex: Female

DRUGS (2)
  1. ENBREL [Suspect]
     Indication: RHEUMATOID ARTHRITIS
     Dosage: 50 MG, WEEKLY
     Dates: start: 201211
  2. METHOTREXATE [Concomitant]
     Dosage: 15 MG, WEEKLY
     Route: 048
     Dates: start: 201201

REACTIONS (1)
  - Head discomfort [Recovered/Resolved]
